FAERS Safety Report 8885246 (Version 1)
Quarter: 2012Q4

REPORT INFORMATION
  Report Type: 
  Country: DE (occurrence: DE)
  Receive Date: 20121101
  Receipt Date: 20121101
  Transmission Date: 20130627
  Serious: Yes (Hospitalization, Other)
  Sender: FDA-Public Use
  Company Number: DE-ABBOTT-12P-062-0999564-00

PATIENT
  Sex: Male

DRUGS (1)
  1. HUMIRA [Suspect]
     Indication: PSORIATIC ARTHROPATHY
     Dates: start: 201104, end: 201210

REACTIONS (9)
  - Convulsion [Not Recovered/Not Resolved]
  - Grunting [Unknown]
  - Muscle spasms [Unknown]
  - Eye movement disorder [Unknown]
  - Loss of consciousness [Unknown]
  - Foaming at mouth [Unknown]
  - Brain neoplasm [Unknown]
  - Tongue biting [Unknown]
  - Mouth haemorrhage [Unknown]
